FAERS Safety Report 9768084 (Version 2)
Quarter: 2013Q4

REPORT INFORMATION
  Report Type: Spontaneous
  Country: US (occurrence: US)
  Receive Date: 20131217
  Receipt Date: 20131217
  Transmission Date: 20140711
  Serious: Yes (Death)
  Sender: FDA-Public Use
  Company Number: US-GLAXOSMITHKLINE-A0903055A

PATIENT
  Age: 50 Year
  Sex: Male

DRUGS (17)
  1. AVANDIA [Suspect]
     Indication: DIABETES MELLITUS
     Dosage: 4MG PER DAY
     Route: 048
     Dates: start: 20040513, end: 20050317
  2. AVANDAMET [Suspect]
     Indication: DIABETES MELLITUS
     Route: 048
     Dates: start: 2003, end: 20040405
  3. ASPIRIN [Concomitant]
  4. MORPHINE [Concomitant]
  5. MEVACOR [Concomitant]
  6. ZESTRIL [Concomitant]
  7. NORVASC [Concomitant]
  8. GLUCOPHAGE [Concomitant]
  9. ELAVIL [Concomitant]
  10. ATENOLOL [Concomitant]
  11. LORTAB [Concomitant]
  12. LOVASTATIN [Concomitant]
  13. LISINOPRIL [Concomitant]
  14. AMITRIPTYLINE [Concomitant]
  15. TRICOR [Concomitant]
  16. NITROGLYCERIN [Concomitant]
  17. METFORMIN [Concomitant]

REACTIONS (3)
  - Endocarditis bacterial [Fatal]
  - Cardiac failure congestive [Unknown]
  - Pericardial effusion [Unknown]
